FAERS Safety Report 6346746-X (Version None)
Quarter: 2009Q3

REPORT INFORMATION
  Report Type: 
  Country: None (occurrence: None)
  Receive Date: 20090904
  Receipt Date: 20090827
  Transmission Date: 20100115
  Serious: Yes (Hospitalization)
  Sender: FDA-Public Use
  Company Number: 2009BM000154

PATIENT
  Age: 15 Year
  Sex: Male
  Weight: 19 kg

DRUGS (2)
  1. NAGLAZYME [Suspect]
     Indication: MUCOPOLYSACCHARIDOSIS VI
     Dosage: 4 VIALS; QW; IVDRIP; IVDRIP
     Route: 041
     Dates: start: 20071127, end: 20090101
  2. NAGLAZYME [Suspect]
     Indication: MUCOPOLYSACCHARIDOSIS VI
     Dosage: 4 VIALS; QW; IVDRIP; IVDRIP
     Route: 041
     Dates: start: 20090801

REACTIONS (11)
  - BRONCHIAL OBSTRUCTION [None]
  - CLONUS [None]
  - EXTENSOR PLANTAR RESPONSE [None]
  - HEPATOMEGALY [None]
  - IMPLANT OBSTRUCTION [None]
  - LUNG INFECTION PSEUDOMONAL [None]
  - OBSTRUCTIVE AIRWAYS DISORDER [None]
  - PNEUMONIA [None]
  - PULMONARY HYPERTENSION [None]
  - QUADRIPARESIS [None]
  - RESPIRATORY DISTRESS [None]
